FAERS Safety Report 9999226 (Version 3)
Quarter: 2014Q2

REPORT INFORMATION
  Report Type: Spontaneous
  Country: MX (occurrence: MX)
  Receive Date: 20140312
  Receipt Date: 20140414
  Transmission Date: 20141212
  Serious: Yes (Other)
  Sender: FDA-Public Use
  Company Number: MX-ELI_LILLY_AND_COMPANY-MX201403001385

PATIENT
  Age: 33 Year
  Sex: Female

DRUGS (4)
  1. CYMBALTA [Suspect]
     Indication: POSTPARTUM DEPRESSION
     Dosage: 60 MG, UNKNOWN
     Route: 065
  2. CYMBALTA [Suspect]
     Dosage: 30 MG, UNKNOWN
     Route: 065
  3. CYMBALTA [Suspect]
     Dosage: 60 MG, QOD
     Route: 065
  4. CYMBALTA [Suspect]
     Dosage: 30 MG, QD
     Route: 065

REACTIONS (4)
  - Suicidal ideation [Recovered/Resolved]
  - Hepatic steatosis [Unknown]
  - Transaminases increased [Unknown]
  - Fatigue [Recovered/Resolved]
